FAERS Safety Report 4863987-9 (Version None)
Quarter: 2005Q4

REPORT INFORMATION
  Report Type: 
  Country: None (occurrence: None)
  Receive Date: 20051222
  Receipt Date: 20051213
  Transmission Date: 20060501
  Serious: Yes (Hospitalization)
  Sender: FDA-Public Use
  Company Number: US-ABBOTT-05P-163-0319679-00

PATIENT
  Age: 24 Year
  Sex: Male

DRUGS (1)
  1. LEXAPRO [Suspect]
     Indication: ANGER
     Route: 048
     Dates: start: 20051031, end: 20051103

REACTIONS (1)
  - COLITIS ISCHAEMIC [None]
